FAERS Safety Report 9722915 (Version 1)
Quarter: 2013Q4

REPORT INFORMATION
  Report Type: Spontaneous
  Country: AU (occurrence: AU)
  Receive Date: 20131202
  Receipt Date: 20131202
  Transmission Date: 20140711
  Serious: Yes (Life-Threatening)
  Sender: FDA-Public Use
  Company Number: AU-ASTRAZENECA-2013SE86847

PATIENT
  Age: 53 Year
  Sex: Male

DRUGS (4)
  1. PROPOFOL [Suspect]
     Route: 042
     Dates: start: 20131009
  2. FENTANYL [Suspect]
     Dates: start: 20131009, end: 20131009
  3. MIDAZOLAM [Suspect]
     Dates: start: 20131009, end: 20131009
  4. ROCURONIUM BROMIDE [Suspect]
     Route: 042
     Dates: start: 20131009

REACTIONS (5)
  - Oxygen saturation decreased [Recovered/Resolved]
  - Heart rate increased [Recovered/Resolved]
  - Hypoventilation [Recovered/Resolved]
  - Blood pressure systolic decreased [Recovered/Resolved]
  - Anaphylactic reaction [Recovered/Resolved]
